FAERS Safety Report 14532092 (Version 2)
Quarter: 2018Q1

REPORT INFORMATION
  Report Type: Report from Study
  Country: None (occurrence: CN)
  Receive Date: 20180214
  Receipt Date: 20180316
  Transmission Date: 20180509
  Serious: Yes (Hospitalization)
  Sender: FDA-Public Use
  Company Number: CN-ABBVIE-18P-035-2253777-00

PATIENT
  Age: 45 Year
  Sex: Male
  Weight: 69 kg

DRUGS (1)
  1. PANCREATIN [Suspect]
     Active Substance: PANCRELIPASE
     Indication: PANCREATIC FAILURE
     Route: 065

REACTIONS (1)
  - Pancreatolithiasis [Recovered/Resolved]

NARRATIVE: CASE EVENT DATE: 20180117
